FAERS Safety Report 4756256-9 (Version None)
Quarter: 2005Q3

REPORT INFORMATION
  Report Type: 
  Country: None (occurrence: None)
  Receive Date: 20050830
  Receipt Date: 20050516
  Transmission Date: 20060218
  Serious: No
  Sender: FDA-Public Use
  Company Number: US-GLAXOSMITHKLINE-A0558783A

PATIENT
  Age: 45 Year
  Sex: Female
  Weight: 63.2 kg

DRUGS (2)
  1. WELLBUTRIN XL [Suspect]
     Indication: DEPRESSION
     Dosage: 300MG PER DAY
     Route: 048
     Dates: start: 20050415, end: 20050515
  2. NO CONCURRENT MEDICATION [Concomitant]

REACTIONS (1)
  - TINNITUS [None]
